FAERS Safety Report 9113391 (Version 1)
Quarter: 2013Q1

REPORT INFORMATION
  Report Type: Spontaneous
  Country: US (occurrence: US)
  Receive Date: 20130131
  Receipt Date: 20130131
  Transmission Date: 20140127
  Serious: Yes (Other)
  Sender: FDA-Public Use
  Company Number: US-009507513-1301USA014246

PATIENT
  Sex: Male

DRUGS (16)
  1. SINGULAIR [Suspect]
  2. ASPIRIN [Concomitant]
  3. OMEPRAZOLE [Concomitant]
  4. LABETALOL HYDROCHLORIDE [Concomitant]
  5. [COMPOSITION UNSPECIFIED] [Concomitant]
  6. ALCOHOL [Concomitant]
  7. METFORMIN [Concomitant]
  8. PIROXICAM [Concomitant]
  9. DULOXETINE HYDROCHLORIDE [Concomitant]
  10. OXCARBAZEPINE [Concomitant]
  11. LISINOPRIL (+) HYDROCHLOROTHIAZIDE [Concomitant]
  12. SERTRALINE HYDROCHLORIDE [Concomitant]
  13. AMOXICILLIN (+) CLAVULANATE POTASSIUM [Concomitant]
  14. FOLIC ACID (+) CYANCOBALAMIN [Concomitant]
  15. SIMVASTATIN TABLETS, USP [Concomitant]
  16. PREDNISONE [Concomitant]

REACTIONS (1)
  - Suicide attempt [Unknown]
